FAERS Safety Report 25417023 (Version 1)
Quarter: 2025Q2

REPORT INFORMATION
  Report Type: Spontaneous
  Country: FR (occurrence: FR)
  Receive Date: 20250610
  Receipt Date: 20250610
  Transmission Date: 20250716
  Serious: Yes (Other)
  Sender: MYLAN
  Company Number: None

PATIENT
  Age: 72 Year
  Sex: Female

DRUGS (7)
  1. CLOZAPINE [Suspect]
     Active Substance: CLOZAPINE
     Indication: Schizoaffective disorder
     Dosage: 200 MILLIGRAM, QD
     Dates: start: 2021
  2. CARBAMAZEPINE [Suspect]
     Active Substance: CARBAMAZEPINE
     Indication: Schizoaffective disorder
     Dosage: 400 MILLIGRAM, QD
     Dates: start: 2020
  3. TRIMEPRAZINE [Suspect]
     Active Substance: TRIMEPRAZINE
     Indication: Schizoaffective disorder
     Dosage: 20 MILLIGRAM, QD (SCORED FILM-COATED TABLET)
     Dates: start: 2015
  4. VALIUM [Concomitant]
     Active Substance: DIAZEPAM
     Dosage: 20 MILLIGRAM, QD
  5. LEVOTHYROXINE SODIUM [Concomitant]
     Active Substance: LEVOTHYROXINE SODIUM
     Indication: Autoimmune thyroiditis
     Dosage: 100 MICROGRAM, QD
  6. IRBESARTAN [Concomitant]
     Active Substance: IRBESARTAN
     Indication: Hypertension
     Dosage: 150 MILLIGRAM, QD
  7. ATROPINE [Concomitant]
     Active Substance: ATROPINE
     Dosage: 1 DOSAGE FORM, QD (1 DROP IN THE MORNING)

REACTIONS (1)
  - Circulating anticoagulant positive [Not Recovered/Not Resolved]

NARRATIVE: CASE EVENT DATE: 20241101
